FAERS Safety Report 9001742 (Version 1)
Quarter: 2013Q1

REPORT INFORMATION
  Report Type: Spontaneous
  Country: US (occurrence: US)
  Receive Date: 20130107
  Receipt Date: 20130107
  Transmission Date: 20140127
  Serious: No
  Sender: FDA-Public Use
  Company Number: US-ASTELLAS-2012US010817

PATIENT
  Sex: Male

DRUGS (1)
  1. MYRBETRIQ [Suspect]
     Indication: POLLAKIURIA
     Dosage: 25 MG, UNKNOWN/D
     Route: 065

REACTIONS (6)
  - Drug ineffective [Unknown]
  - Pollakiuria [Unknown]
  - Dry throat [Unknown]
  - Dry mouth [Unknown]
  - Dry eye [Unknown]
  - Blood pressure increased [Unknown]
